FAERS Safety Report 10711219 (Version 3)
Quarter: 2016Q1

REPORT INFORMATION
  Report Type: Spontaneous
  Country: TR (occurrence: TR)
  Receive Date: 20150114
  Receipt Date: 20160216
  Transmission Date: 20160525
  Serious: Yes (Hospitalization)
  Sender: FDA-Public Use
  Company Number: TR-JNJFOC-20150108340

PATIENT
  Age: 40 Year
  Sex: Female
  Weight: 77 kg

DRUGS (1)
  1. SIMPONI [Suspect]
     Active Substance: GOLIMUMAB
     Indication: ANKYLOSING SPONDYLITIS
     Route: 058
     Dates: start: 20140412, end: 20160123

REACTIONS (4)
  - Drug ineffective [Unknown]
  - Upper limb fracture [Recovering/Resolving]
  - Melanocytic naevus [Recovering/Resolving]
  - Fall [Recovering/Resolving]

NARRATIVE: CASE EVENT DATE: 20150128
